FAERS Safety Report 23090388 (Version 1)
Quarter: 2023Q4

REPORT INFORMATION
  Report Type: Spontaneous
  Country: FR (occurrence: FR)
  Receive Date: 20231020
  Receipt Date: 20231020
  Transmission Date: 20240110
  Serious: Yes (Life-Threatening)
  Sender: FDA-Public Use
  Company Number: None

PATIENT
  Age: 34 Year
  Sex: Female

DRUGS (6)
  1. KARDEGIC [Suspect]
     Active Substance: ASPIRIN DL-LYSINE
     Indication: Myocardial ischaemia
     Dosage: 75 MG, QD
     Route: 048
     Dates: start: 20230309
  2. LOVENOX [Suspect]
     Active Substance: ENOXAPARIN SODIUM
     Indication: Myocardial ischaemia
     Dosage: 9000 IU, BID
     Route: 058
     Dates: start: 20230309, end: 20230316
  3. TICAGRELOR [Suspect]
     Active Substance: TICAGRELOR
     Indication: Myocardial ischaemia
     Dosage: 180 MG, QD
     Route: 048
     Dates: start: 20230309
  4. MISOPROSTOL [Suspect]
     Active Substance: MISOPROSTOL
     Indication: Aborted pregnancy
     Dosage: 400 UG
     Route: 048
     Dates: start: 20230309, end: 20230309
  5. EZETIMIBE [Concomitant]
     Active Substance: EZETIMIBE
     Indication: Ischaemic heart disease prophylaxis
     Route: 048
     Dates: start: 20230309
  6. ATORVASTATIN [Concomitant]
     Active Substance: ATORVASTATIN
     Indication: Ischaemic heart disease prophylaxis
     Dosage: 80 UG, QD
     Route: 048
     Dates: start: 20230309

REACTIONS (1)
  - Intermenstrual bleeding [Recovering/Resolving]

NARRATIVE: CASE EVENT DATE: 20230309
